FAERS Safety Report 6728937-9 (Version None)
Quarter: 2010Q2

REPORT INFORMATION
  Report Type: 
  Country: None (occurrence: None)
  Receive Date: 20100517
  Receipt Date: 20100409
  Transmission Date: 20101027
  Serious: No
  Sender: FDA-Public Use
  Company Number: US-ABBOTT-10P-163-0632597-00

PATIENT
  Sex: Male
  Weight: 86.26 kg

DRUGS (11)
  1. SIMCOR [Suspect]
     Indication: HIGH DENSITY LIPOPROTEIN DECREASED
     Dosage: 500/20MG QHS
     Dates: start: 20100219, end: 20100309
  2. SIMCOR [Suspect]
     Dosage: 500/40MG QHS
     Dates: start: 20100310
  3. ALTACE [Concomitant]
     Indication: HYPERTENSION
  4. HYDROCHLOROTHIAZIDE [Concomitant]
     Indication: HYPERTENSION
     Dosage: EVERY MORNING
  5. ASPIRIN [Concomitant]
     Indication: DRUG USE FOR UNKNOWN INDICATION
     Dosage: 30 TO 45 MINUTES BEFORE SIMCOR
  6. ATENOLOL [Concomitant]
     Indication: HYPERTENSION
  7. LEVOXYL [Concomitant]
     Indication: THYROIDECTOMY
  8. CHONDROITIN [Concomitant]
     Indication: DRUG USE FOR UNKNOWN INDICATION
  9. CALCIUM [Concomitant]
     Indication: DRUG USE FOR UNKNOWN INDICATION
  10. VITAMIN C [Concomitant]
     Indication: DRUG USE FOR UNKNOWN INDICATION
  11. METHOTREXATE [Concomitant]
     Indication: RHEUMATOID ARTHRITIS

REACTIONS (3)
  - FLUSHING [None]
  - LOW DENSITY LIPOPROTEIN INCREASED [None]
  - SKIN BURNING SENSATION [None]
